FAERS Safety Report 7373781-5 (Version None)
Quarter: 2011Q1

REPORT INFORMATION
  Report Type: 
  Country: None (occurrence: None)
  Receive Date: 20110315
  Receipt Date: 20110304
  Transmission Date: 20110831
  Serious: Yes (Other)
  Sender: FDA-Public Use
  Company Number: 2011SP010822

PATIENT
  Sex: Female

DRUGS (1)
  1. NEXPLANON (ETONOGESTREL /01502301/) [Suspect]
     Indication: PRODUCT USED FOR UNKNOWN INDICATION
     Dosage: 68 MG
     Dates: start: 20110224, end: 20110304

REACTIONS (6)
  - NAUSEA [None]
  - FLUSHING [None]
  - DIZZINESS [None]
  - VISION BLURRED [None]
  - SWELLING FACE [None]
  - HYPERSENSITIVITY [None]
